FAERS Safety Report 11414773 (Version 1)
Quarter: 2015Q3

REPORT INFORMATION
  Report Type: Spontaneous
  Country: BR (occurrence: BR)
  Receive Date: 20150825
  Receipt Date: 20150825
  Transmission Date: 20151125
  Serious: Yes (Other)
  Sender: FDA-Public Use
  Company Number: BR-ROCHE-1621933

PATIENT
  Age: 74 Year
  Sex: Female

DRUGS (5)
  1. IRINOTECAN [Suspect]
     Active Substance: IRINOTECAN
     Indication: COLON CANCER METASTATIC
     Route: 065
     Dates: start: 201111
  2. AVASTIN [Suspect]
     Active Substance: BEVACIZUMAB
     Indication: COLON CANCER METASTATIC
     Route: 065
     Dates: start: 201006
  3. FOLINIC ACID [Suspect]
     Active Substance: LEUCOVORIN
     Indication: COLON CANCER METASTATIC
     Route: 065
     Dates: start: 201006
  4. FLUOROURACIL. [Suspect]
     Active Substance: FLUOROURACIL
     Indication: COLON CANCER METASTATIC
     Route: 065
     Dates: start: 201006
  5. OXALIPLATIN. [Suspect]
     Active Substance: OXALIPLATIN
     Indication: COLON CANCER METASTATIC
     Route: 065
     Dates: start: 201006

REACTIONS (8)
  - Colon neoplasm [Unknown]
  - Carcinoembryonic antigen increased [Not Recovered/Not Resolved]
  - Anaphylactic reaction [Unknown]
  - Peritoneal neoplasm [Not Recovered/Not Resolved]
  - Adenocarcinoma of colon [Unknown]
  - Lymph node calcification [Unknown]
  - Pancreatic neoplasm [Unknown]
  - Alopecia [Unknown]

NARRATIVE: CASE EVENT DATE: 201101
